FAERS Safety Report 7114265-9 (Version None)
Quarter: 2010Q4

REPORT INFORMATION
  Report Type: 
  Country: None (occurrence: None)
  Receive Date: 20101119
  Receipt Date: 20101104
  Transmission Date: 20110411
  Serious: Yes (Hospitalization)
  Sender: FDA-Public Use
  Company Number: PHHO2006US02602

PATIENT
  Sex: Male
  Weight: 9.6 kg

DRUGS (1)
  1. ELIDEL [Suspect]
     Indication: DERMATITIS ATOPIC
     Dosage: TWICE DAILY
     Route: 061

REACTIONS (4)
  - DEHYDRATION [None]
  - DIARRHOEA [None]
  - GASTROENTERITIS VIRAL [None]
  - VOMITING [None]
